FAERS Safety Report 8199308-6 (Version None)
Quarter: 2012Q1

REPORT INFORMATION
  Report Type: 
  Country: None (occurrence: None)
  Receive Date: 20120309
  Receipt Date: 20120306
  Transmission Date: 20120608
  Serious: Yes (Other)
  Sender: FDA-Public Use
  Company Number: JP-PFIZER INC-2012031225

PATIENT
  Age: 59 Year
  Sex: Male

DRUGS (10)
  1. PLAVIX [Concomitant]
     Indication: MYOCARDIAL INFARCTION
     Dosage: 75 MG, 1X/DAY
     Route: 048
     Dates: start: 20110824
  2. ALLOPURINOL [Suspect]
     Indication: HYPERURICAEMIA
     Dosage: 100 MG, 1X/DAY
     Route: 048
     Dates: start: 20120111, end: 20120203
  3. OMEPRAZOLE [Concomitant]
     Indication: DUODENAL ULCER
     Dosage: 20 MG, 1X/DAY
     Route: 048
     Dates: start: 20110924
  4. LASIX [Concomitant]
     Indication: OEDEMA
     Dosage: 20 MG, 1X/DAY
     Route: 048
     Dates: start: 20110824
  5. OMEPRAZOLE [Concomitant]
     Indication: GASTROOESOPHAGEAL REFLUX DISEASE
  6. ACETAMINOPHEN [Concomitant]
     Indication: SPINAL OSTEOARTHRITIS
     Dosage: 400 MG, 1X/DAY
     Route: 048
     Dates: start: 20111216
  7. LYRICA [Suspect]
     Indication: SCIATICA
     Dosage: 75 MG, 2X/DAY
     Route: 048
     Dates: start: 20120111, end: 20120203
  8. MYONAL [Concomitant]
     Indication: SPINAL OSTEOARTHRITIS
     Dosage: 50 MG, 3X/DAY
     Route: 048
     Dates: start: 20111216
  9. METHYCOBAL [Concomitant]
     Indication: NEUROPATHY PERIPHERAL
     Dosage: 0.5 MG, 3X/DAY
     Route: 048
     Dates: start: 20111216
  10. FERROUS CITRATE [Concomitant]
     Indication: IRON DEFICIENCY ANAEMIA
     Dosage: 50 MG, 1X/DAY
     Route: 048
     Dates: start: 20110924

REACTIONS (1)
  - STEVENS-JOHNSON SYNDROME [None]
